FAERS Safety Report 4841322-X (Version None)
Quarter: 2005Q4

REPORT INFORMATION
  Report Type: 
  Country: None (occurrence: None)
  Receive Date: 20051130
  Receipt Date: 20051024
  Transmission Date: 20060501
  Serious: Yes (Other)
  Sender: FDA-Public Use
  Company Number: JP-JPN-A20052561

PATIENT
  Age: 67 Year
  Sex: Male
  Weight: 58 kg

DRUGS (1)
  1. ZOVIRAX [Suspect]
     Indication: HERPES ZOSTER
     Dosage: 125MG PER DAY
     Route: 042
     Dates: start: 20051021, end: 20051023

REACTIONS (4)
  - DYSARTHRIA [None]
  - GAIT DISTURBANCE [None]
  - HAEMODIALYSIS [None]
  - HYPOAESTHESIA [None]
